FAERS Safety Report 18824134 (Version 2)
Quarter: 2021Q1

REPORT INFORMATION
  Report Type: Spontaneous
  Country: US (occurrence: US)
  Receive Date: 20210202
  Receipt Date: 20210210
  Transmission Date: 20210419
  Serious: Yes (Hospitalization)
  Sender: FDA-Public Use
  Company Number: US-ROCHE-2761199

PATIENT
  Sex: Female

DRUGS (5)
  1. HCTZ [Concomitant]
     Active Substance: HYDROCHLOROTHIAZIDE
  2. ERIVEDGE [Suspect]
     Active Substance: VISMODEGIB
     Indication: MULTIPLE CONGENITAL ABNORMALITIES
     Route: 048
  3. CARISOPRODOL. [Concomitant]
     Active Substance: CARISOPRODOL
  4. ONDANSETRON [Concomitant]
     Active Substance: ONDANSETRON
  5. ACETAMINOPHEN. [Concomitant]
     Active Substance: ACETAMINOPHEN

REACTIONS (7)
  - Intentional product use issue [Unknown]
  - Diarrhoea [Unknown]
  - COVID-19 [Unknown]
  - Blood potassium decreased [Unknown]
  - Vomiting [Unknown]
  - Blood sodium decreased [Unknown]
  - Off label use [Unknown]
